FAERS Safety Report 17559323 (Version 5)
Quarter: 2020Q4

REPORT INFORMATION
  Report Type: Report from Study
  Country: BR (occurrence: BR)
  Receive Date: 20200319
  Receipt Date: 20201123
  Transmission Date: 20210113
  Serious: Yes (Hospitalization)
  Sender: FDA-Public Use
  Company Number: BR-BIOGEN-2020BI00850176

PATIENT
  Age: 23 Year
  Sex: Female

DRUGS (11)
  1. TYSABRI [Suspect]
     Active Substance: NATALIZUMAB
     Route: 042
     Dates: start: 201708
  2. TYSABRI [Suspect]
     Active Substance: NATALIZUMAB
     Route: 042
     Dates: start: 20200403
  3. TYSABRI [Suspect]
     Active Substance: NATALIZUMAB
     Indication: MULTIPLE SCLEROSIS
     Route: 042
     Dates: start: 201612, end: 201704
  4. TYSABRI [Suspect]
     Active Substance: NATALIZUMAB
     Route: 042
     Dates: start: 20170718, end: 20180221
  5. TYSABRI [Suspect]
     Active Substance: NATALIZUMAB
     Route: 042
     Dates: start: 20200327
  6. TYSABRI [Suspect]
     Active Substance: NATALIZUMAB
     Route: 042
     Dates: start: 202004
  7. TYSABRI [Suspect]
     Active Substance: NATALIZUMAB
     Route: 042
     Dates: start: 202008
  8. TYSABRI [Suspect]
     Active Substance: NATALIZUMAB
     Route: 042
  9. PREDNISONE. [Concomitant]
     Active Substance: PREDNISONE
     Indication: PRODUCT USED FOR UNKNOWN INDICATION
     Route: 065
  10. SOLU-MEDROL [Concomitant]
     Active Substance: METHYLPREDNISOLONE SODIUM SUCCINATE
     Indication: PREMEDICATION
     Route: 065
  11. BENADRYL [Concomitant]
     Active Substance: DIPHENHYDRAMINE HYDROCHLORIDE
     Indication: PREMEDICATION
     Route: 065

REACTIONS (7)
  - Malaise [Unknown]
  - Dyspnoea [Recovered/Resolved]
  - Flushing [Recovered/Resolved]
  - Vitamin D deficiency [Unknown]
  - Multiple sclerosis relapse [Recovered/Resolved]
  - Chest pain [Recovered/Resolved]
  - Iron deficiency [Unknown]

NARRATIVE: CASE EVENT DATE: 20180130
